FAERS Safety Report 17994577 (Version 1)
Quarter: 2020Q3

REPORT INFORMATION
  Report Type: Spontaneous
  Country: ES (occurrence: ES)
  Receive Date: 20200708
  Receipt Date: 20200708
  Transmission Date: 20201103
  Serious: Yes (Hospitalization)
  Sender: FDA-Public Use
  Company Number: ES-ABBVIE-20K-144-3473114-00

PATIENT
  Age: 61 Year
  Sex: Male
  Weight: 56.6 kg

DRUGS (2)
  1. DOLQUINE [Suspect]
     Active Substance: HYDROXYCHLOROQUINE SULFATE
     Indication: COVID-19
     Dosage: 200 MG CADA 12 HORAS, CON 400 MG/12H DE DOSIS DE CARGA EL PRIMER D?A
     Route: 048
     Dates: start: 20200331, end: 20200404
  2. KALETRA [Suspect]
     Active Substance: LOPINAVIR\RITONAVIR
     Indication: COVID-19 TREATMENT
     Dosage: 400/100 MG CADA 12 HORAS
     Route: 048
     Dates: start: 20200405, end: 20200414

REACTIONS (1)
  - Sinus bradycardia [Recovered/Resolved]

NARRATIVE: CASE EVENT DATE: 20200421
